FAERS Safety Report 7677809-4 (Version None)
Quarter: 2011Q3

REPORT INFORMATION
  Report Type: 
  Country: None (occurrence: None)
  Receive Date: 20110808
  Receipt Date: 20110802
  Transmission Date: 20111222
  Serious: Yes (Other)
  Sender: FDA-Public Use
  Company Number: GB-ACCORD-005823

PATIENT
  Age: 52 Year
  Sex: Female

DRUGS (10)
  1. BASILIXIMAB (BASILIXIMAM) [Suspect]
     Indication: PRODUCT USED FOR UNKNOWN INDICATION
  2. FAMOTIDINE [Concomitant]
  3. VALGANCICLOVIR HCL [Concomitant]
  4. SIROLIMUS (RAPAMUNE) [Suspect]
     Indication: IMMUNOSUPPRESSION
  5. METOPROLOL TARTRATE [Concomitant]
  6. SIMVASTATIN [Concomitant]
  7. TRIMETHOPRIM [Concomitant]
  8. MYCOPHENOLATE MOFETIL [Suspect]
     Indication: IMMUNOSUPPRESSION
     Dosage: 500.00-MG-2.00 TIMES PER-1.0 DAYS
  9. TACROLIMUS [Suspect]
     Indication: IMMUNOSUPPRESSION
  10. HYDRALAZINE HCL [Concomitant]

REACTIONS (13)
  - FOOT FRACTURE [None]
  - BONE MARROW OEDEMA [None]
  - VITAMIN D DEFICIENCY [None]
  - PAIN IN EXTREMITY [None]
  - NO THERAPEUTIC RESPONSE [None]
  - BONE MARROW OEDEMA SYNDROME [None]
  - ARTHRITIS [None]
  - IMMUNOSUPPRESSION [None]
  - OSTEOPENIA [None]
  - HYPERPARATHYROIDISM [None]
  - OSTEOMALACIA [None]
  - BLOOD ALKALINE PHOSPHATASE INCREASED [None]
  - COMPLEX REGIONAL PAIN SYNDROME [None]
